FAERS Safety Report 8343876-8 (Version None)
Quarter: 2012Q2

REPORT INFORMATION
  Report Type: 
  Country: None (occurrence: None)
  Receive Date: 20120508
  Receipt Date: 20120427
  Transmission Date: 20120825
  Serious: Yes (Other)
  Sender: FDA-Public Use
  Company Number: US-JNJFOC-20120414267

PATIENT
  Sex: Female

DRUGS (4)
  1. REMICADE [Suspect]
     Indication: PSORIASIS
     Route: 042
     Dates: start: 20120206
  2. REMICADE [Suspect]
     Indication: RHEUMATOID ARTHRITIS
     Route: 042
     Dates: start: 20100301
  3. REMICADE [Suspect]
     Route: 042
     Dates: start: 20100301
  4. REMICADE [Suspect]
     Route: 042
     Dates: start: 20120206

REACTIONS (3)
  - ARTHRALGIA [None]
  - MATERNAL EXPOSURE DURING PREGNANCY [None]
  - ABORTION SPONTANEOUS [None]
